FAERS Safety Report 7257059-6 (Version None)
Quarter: 2011Q1

REPORT INFORMATION
  Report Type: 
  Country: None (occurrence: None)
  Receive Date: 20110129
  Receipt Date: 20100817
  Transmission Date: 20110831
  Serious: No
  Sender: FDA-Public Use
  Company Number: US-ABBOTT-10P-163-0664408-00

PATIENT
  Age: 53 Year
  Sex: Female

DRUGS (32)
  1. MS CONTIN [Concomitant]
     Indication: PAIN
  2. VICODIN ES [Concomitant]
     Indication: PRODUCT USED FOR UNKNOWN INDICATION
  3. METOPROLOL [Concomitant]
     Indication: CARDIAC DISORDER
  4. SYMBICORT [Concomitant]
     Indication: PRODUCT USED FOR UNKNOWN INDICATION
  5. POTASSIUM [Concomitant]
     Indication: PRODUCT USED FOR UNKNOWN INDICATION
  6. MS CONTIN [Concomitant]
  7. PREDNISONE [Concomitant]
     Indication: PRODUCT USED FOR UNKNOWN INDICATION
  8. MUCINEX [Concomitant]
     Indication: PRODUCT USED FOR UNKNOWN INDICATION
  9. MULTI-VITAMINS [Concomitant]
     Indication: PRODUCT USED FOR UNKNOWN INDICATION
  10. NEXIUM [Concomitant]
     Indication: PRODUCT USED FOR UNKNOWN INDICATION
  11. NYSTATIN [Concomitant]
     Indication: PRODUCT USED FOR UNKNOWN INDICATION
  12. AMBIEN [Concomitant]
     Indication: PRODUCT USED FOR UNKNOWN INDICATION
  13. BACTRIM [Concomitant]
     Indication: PRODUCT USED FOR UNKNOWN INDICATION
  14. ZOLOFT [Concomitant]
     Indication: ANXIETY
  15. DUROGESIC PATCHES [Concomitant]
     Indication: PAIN
  16. LASIX [Concomitant]
     Indication: PRODUCT USED FOR UNKNOWN INDICATION
  17. ROXANOL [Concomitant]
     Indication: BREAKTHROUGH PAIN
  18. MORPHINE [Concomitant]
     Indication: PRODUCT USED FOR UNKNOWN INDICATION
  19. ASA [Concomitant]
     Indication: PRODUCT USED FOR UNKNOWN INDICATION
  20. BREATHING MACHINE TREATMENTS [Concomitant]
     Indication: PRODUCT USED FOR UNKNOWN INDICATION
  21. HUMIRA [Suspect]
     Indication: RHEUMATOID ARTHRITIS
     Dates: start: 20070101
  22. CELEBREX [Concomitant]
     Indication: PRODUCT USED FOR UNKNOWN INDICATION
  23. XANAX [Concomitant]
     Indication: PRODUCT USED FOR UNKNOWN INDICATION
  24. MUCINEX [Concomitant]
     Indication: HAEMORRHAGE
  25. ANOTHER INHALER LIKE ALBUTEROL [Concomitant]
     Indication: PRODUCT USED FOR UNKNOWN INDICATION
  26. ATIVAN [Concomitant]
     Indication: PRODUCT USED FOR UNKNOWN INDICATION
  27. ANTI-DIARRHEAL [Concomitant]
     Indication: PRODUCT USED FOR UNKNOWN INDICATION
  28. CRANBERRY [Concomitant]
     Indication: URINARY TRACT DISORDER
  29. FOLIC ACID [Concomitant]
     Indication: PRODUCT USED FOR UNKNOWN INDICATION
  30. IRON [Concomitant]
     Indication: ANAEMIA
  31. VIT D [Concomitant]
     Indication: PRODUCT USED FOR UNKNOWN INDICATION
  32. CIPRO [Concomitant]
     Indication: PRODUCT USED FOR UNKNOWN INDICATION

REACTIONS (2)
  - PRURITUS [None]
  - INJECTION SITE HAEMATOMA [None]
